FAERS Safety Report 9785524 (Version 1)
Quarter: 2013Q4

REPORT INFORMATION
  Report Type: Report from Study
  Country: US (occurrence: US)
  Receive Date: 20131227
  Receipt Date: 20131227
  Transmission Date: 20140711
  Serious: Yes (Life-Threatening, Hospitalization, Other)
  Sender: FDA-Public Use
  Company Number: US-ASTELLAS-2013US013411

PATIENT
  Sex: Female

DRUGS (5)
  1. ERLOTINIB TABLET [Suspect]
     Indication: PRODUCT USED FOR UNKNOWN INDICATION
     Dosage: 100 MG, UID/QD
     Route: 048
  2. ERLOTINIB TABLET [Suspect]
     Dosage: 150 MG, UID/QD
     Route: 048
  3. TAMSULOSIN [Concomitant]
     Indication: PRODUCT USED FOR UNKNOWN INDICATION
     Dosage: UNK
     Route: 065
  4. WARFARIN                           /00014802/ [Concomitant]
     Indication: THROMBOSIS
     Dosage: UNK, 8 MG ONE DAY AND 6 MG THE OTHER
     Route: 065
     Dates: start: 2010
  5. WARFARIN                           /00014802/ [Concomitant]
     Dosage: 7 MG, UID/QD
     Route: 065
     Dates: start: 2013

REACTIONS (11)
  - Drug level increased [Unknown]
  - Nephrolithiasis [Unknown]
  - Nephrolithiasis [Unknown]
  - Thrombosis [Unknown]
  - Deep vein thrombosis [Unknown]
  - Haematemesis [Unknown]
  - Neoplasm [Unknown]
  - Neoplasm malignant [Unknown]
  - Food intolerance [Unknown]
  - Epistaxis [Unknown]
  - Flank pain [Unknown]
